FAERS Safety Report 20097231 (Version 1)
Quarter: 2021Q4

REPORT INFORMATION
  Report Type: Spontaneous
  Country: US (occurrence: US)
  Receive Date: 20211122
  Receipt Date: 20211122
  Transmission Date: 20220304
  Serious: Yes (Other)
  Sender: FDA-Public Use
  Company Number: US-SLATE RUN PHARMACEUTICALS-21US000779

PATIENT

DRUGS (2)
  1. VANCOMYCIN HYDROCHLORIDE [Suspect]
     Active Substance: VANCOMYCIN HYDROCHLORIDE
     Indication: Arthritis bacterial
     Dosage: 1.5 GRAM, Q 8 HR
  2. PIPERACILLIN AND TAZOBACTAM [Concomitant]
     Active Substance: PIPERACILLIN SODIUM\TAZOBACTAM SODIUM
     Indication: Arthritis bacterial

REACTIONS (2)
  - Acute kidney injury [Recovered/Resolved]
  - Nephropathy toxic [Recovered/Resolved]
